FAERS Safety Report 13552894 (Version 3)
Quarter: 2017Q2

REPORT INFORMATION
  Report Type: Spontaneous
  Country: US (occurrence: US)
  Receive Date: 20170517
  Receipt Date: 20170607
  Transmission Date: 20170830
  Serious: Yes (Hospitalization, Other)
  Sender: FDA-Public Use
  Company Number: US-SUN PHARMACEUTICAL INDUSTRIES LTD-2017US-139562

PATIENT
  Age: 7 Year
  Sex: Female

DRUGS (4)
  1. CLONAZEPAM. [Concomitant]
     Active Substance: CLONAZEPAM
     Indication: SEIZURE
     Dosage: 0.5 MG, QD
     Route: 048
  2. CLOBAZAM [Interacting]
     Active Substance: CLOBAZAM
     Indication: SEIZURE
     Dosage: 15 MG, BID
     Route: 048
  3. LAMOTRIGINE. [Interacting]
     Active Substance: LAMOTRIGINE
     Indication: SEIZURE
     Dosage: 100 MG, BID
     Route: 048
  4. VALPROIC ACID. [Suspect]
     Active Substance: VALPROIC ACID
     Indication: SEIZURE
     Dosage: 250 MG, BID
     Route: 048

REACTIONS (5)
  - Gait disturbance [Recovered/Resolved]
  - Seizure [Recovered/Resolved]
  - Drug interaction [Unknown]
  - Drug level increased [Unknown]
  - Somnolence [Recovered/Resolved]
